FAERS Safety Report 8871990 (Version 1)
Quarter: 2012Q4

REPORT INFORMATION
  Report Type: 
  Country: US (occurrence: US)
  Receive Date: 20121029
  Receipt Date: 20121029
  Transmission Date: 20130627
  Serious: Yes (Hospitalization)
  Sender: FDA-Public Use
  Company Number: US-ACCORD-015032

PATIENT
  Age: 54 Year
  Sex: Female
  Weight: 48 kg

DRUGS (13)
  1. ALOXI [Concomitant]
     Dates: start: 20100713
  2. ALEVE [Concomitant]
     Dates: start: 20110712
  3. CARDIZEM [Concomitant]
     Dates: start: 20120710
  4. MULTIVITAMIN [Concomitant]
     Dosage: Multivitamins, plain
     Dates: start: 20100413
  5. BENADRYL [Concomitant]
     Dates: start: 20120821
  6. POTASSIUM CHLORIDE [Concomitant]
     Dates: start: 20110511
  7. LEUKINE [Concomitant]
     Dates: start: 20100907
  8. INVESTIGATIONAL DRUG [Concomitant]
     Dosage: Study drug: YM155
  9. DEXAMETHASONE [Concomitant]
     Dates: start: 20100901
  10. PROCRIT [Concomitant]
     Dates: start: 20110405
  11. DOCETAXEL [Suspect]
     Indication: METASTATIC BREAST CANCER
     Route: 042
     Dates: start: 20120901
  12. DECADRON [Concomitant]
     Dates: start: 20100901
  13. IRON [Concomitant]
     Dates: start: 20120508

REACTIONS (3)
  - Cellulitis [Unknown]
  - Neutropenia [Unknown]
  - Arthralgia [Unknown]
